FAERS Safety Report 5668200-0 (Version None)
Quarter: 2008Q1

REPORT INFORMATION
  Report Type: 
  Country: None (occurrence: None)
  Receive Date: 20080315
  Receipt Date: 20080222
  Transmission Date: 20080703
  Serious: No
  Sender: FDA-Public Use
  Company Number: US-ABBOTT-08P-163-0438939-00

PATIENT
  Sex: Female
  Weight: 81.72 kg

DRUGS (3)
  1. HUMIRA [Suspect]
     Indication: RHEUMATOID ARTHRITIS
     Route: 058
     Dates: start: 20070701, end: 20080118
  2. HUMIRA [Suspect]
     Route: 058
     Dates: start: 20080118
  3. LORTAB [Concomitant]
     Indication: PAIN
     Route: 048
     Dates: start: 20061201

REACTIONS (6)
  - ACCIDENTAL EXPOSURE [None]
  - DEPRESSION [None]
  - DRUG INEFFECTIVE [None]
  - INJECTION SITE PAIN [None]
  - PAIN [None]
  - SWELLING [None]
